FAERS Safety Report 16024353 (Version 2)
Quarter: 2019Q1

REPORT INFORMATION
  Report Type: Report from Study
  Country: IL (occurrence: IL)
  Receive Date: 20190301
  Receipt Date: 20190311
  Transmission Date: 20190418
  Serious: Yes (Hospitalization)
  Sender: FDA-Public Use
  Company Number: IL-SA-2019SA053380

PATIENT
  Age: 55 Year
  Sex: Male

DRUGS (1)
  1. INSULIN GLARGINE [Suspect]
     Active Substance: INSULIN GLARGINE
     Dosage: 14 U, QD
     Route: 058
     Dates: start: 20181204

REACTIONS (1)
  - Pharyngitis bacterial [Not Recovered/Not Resolved]

NARRATIVE: CASE EVENT DATE: 20190222
